FAERS Safety Report 7085862-4 (Version None)
Quarter: 2010Q4

REPORT INFORMATION
  Report Type: 
  Country: None (occurrence: None)
  Receive Date: 20101105
  Receipt Date: 20101029
  Transmission Date: 20110411
  Serious: Yes (Hospitalization, Other)
  Sender: FDA-Public Use
  Company Number: US-ROCHE-738075

PATIENT
  Age: 56 Year
  Sex: Female
  Weight: 59 kg

DRUGS (17)
  1. KLONOPIN [Interacting]
     Route: 065
  2. CHANTIX [Interacting]
     Indication: SMOKING CESSATION THERAPY
     Dosage: FORM: FILM COATED TABLET
     Route: 048
     Dates: start: 20071204
  3. CHANTIX [Interacting]
     Route: 048
     Dates: end: 20071222
  4. CHANTIX [Interacting]
     Route: 048
     Dates: start: 20080301, end: 20080401
  5. CHANTIX [Interacting]
     Route: 048
  6. CHANTIX [Interacting]
     Route: 048
     Dates: start: 20101007
  7. TRILEPTAL [Suspect]
     Route: 065
  8. CELEXA [Concomitant]
  9. KEPPRA [Concomitant]
     Indication: CONVULSION
  10. REMERON [Concomitant]
     Dosage: FREQUENCY: DAILY
  11. PRILOSEC [Concomitant]
     Dosage: DAILY
  12. CYMBALTA [Concomitant]
     Dosage: DAILY
  13. DETROL LA [Concomitant]
     Dosage: DAILY
  14. AMBIEN [Concomitant]
     Dosage: DAILY
  15. OXYCODONE HCL [Concomitant]
  16. ATIVAN [Concomitant]
  17. NASONEX [Concomitant]

REACTIONS (26)
  - ABDOMINAL PAIN UPPER [None]
  - BONE OPERATION [None]
  - CERVICAL SPINAL STENOSIS [None]
  - CLAUSTROPHOBIA [None]
  - CONVULSION [None]
  - CRYING [None]
  - DEPRESSION [None]
  - DRUG INTERACTION [None]
  - EMOTIONAL DISTRESS [None]
  - FALL [None]
  - FEAR [None]
  - FEELING ABNORMAL [None]
  - FLUID INTAKE REDUCED [None]
  - GASTRIC DILATATION [None]
  - GASTROOESOPHAGEAL REFLUX DISEASE [None]
  - HEADACHE [None]
  - HUNGER [None]
  - HYPOPHAGIA [None]
  - JOINT INJURY [None]
  - MALAISE [None]
  - NAUSEA [None]
  - PATELLA FRACTURE [None]
  - SPINAL OSTEOARTHRITIS [None]
  - VOMITING [None]
  - WEIGHT DECREASED [None]
  - WEIGHT INCREASED [None]
